FAERS Safety Report 8553997-2 (Version None)
Quarter: 2012Q3

REPORT INFORMATION
  Report Type: 
  Country: None (occurrence: None)
  Receive Date: 20120731
  Receipt Date: 20120725
  Transmission Date: 20120928
  Serious: No
  Sender: FDA-Public Use
  Company Number: US-ASTRAZENECA-2012SE52515

PATIENT
  Age: 57 Year
  Sex: Male
  Weight: 117.9 kg

DRUGS (25)
  1. SYMBICORT [Suspect]
     Indication: BRONCHITIS
     Dosage: 160/4.5 MGS ONE PUFF TWO TIMES A DAY
     Route: 055
  2. DICLOFENAC SODIUM [Concomitant]
     Indication: ANTIINFLAMMATORY THERAPY
  3. FISH OIL [Concomitant]
     Indication: CARDIAC DISORDER
  4. LANTUS [Concomitant]
     Indication: DIABETES MELLITUS
  5. CRESTOR [Suspect]
     Indication: BLOOD CHOLESTEROL
     Dosage: DAILY
     Route: 048
  6. GLIPIZIDE [Concomitant]
     Indication: DIABETES MELLITUS
  7. METFORMIN HYDROCHLORIDE [Concomitant]
     Indication: DIABETES MELLITUS
  8. PLAVIX [Concomitant]
     Indication: ANTICOAGULANT THERAPY
  9. VITAMIN D [Concomitant]
     Indication: NASAL DISORDER
  10. VITAMIN D [Concomitant]
     Indication: CARDIAC DISORDER
  11. FIBRE LAXATIVE [Concomitant]
     Indication: LAXATIVE SUPPORTIVE CARE
  12. SYMBICORT [Suspect]
     Dosage: 160/4.5 MGS TWO PUFFS UNKNOWN
     Route: 055
  13. NEXIUM [Suspect]
     Indication: ABDOMINAL PAIN UPPER
     Route: 048
  14. NEXIUM [Suspect]
     Indication: DYSPEPSIA
     Route: 048
  15. DICLOFENAC SODIUM [Concomitant]
     Indication: PAIN
  16. DENOLOPRIL [Concomitant]
     Indication: CARDIAC DISORDER
  17. SYMBICORT [Suspect]
     Dosage: 160/4.5 MGS TWO PUFFS UNKNOWN
     Route: 055
  18. AMBIEN [Concomitant]
     Indication: SLEEP DISORDER
  19. FUROSEMIDE [Concomitant]
     Indication: DIURETIC THERAPY
  20. SINGULAIR [Concomitant]
     Indication: ASTHMA
  21. SYMBICORT [Suspect]
     Indication: ASTHMA
     Dosage: 160/4.5 MGS ONE PUFF TWO TIMES A DAY
     Route: 055
  22. ALLOPURINOL [Concomitant]
     Indication: BLOOD URIC ACID
  23. HYDROCODONE [Concomitant]
     Indication: PAIN
  24. SOMA [Concomitant]
     Indication: MUSCLE RELAXANT THERAPY
  25. METOPROLOL TARTRATE [Concomitant]
     Indication: CARDIAC DISORDER

REACTIONS (5)
  - WHEEZING [None]
  - OROPHARYNGEAL PAIN [None]
  - COUGH [None]
  - ASTHMA [None]
  - OFF LABEL USE [None]
